FAERS Safety Report 6925346-4 (Version None)
Quarter: 2010Q3

REPORT INFORMATION
  Report Type: 
  Country: None (occurrence: None)
  Receive Date: 20100813
  Receipt Date: 20100813
  Transmission Date: 20110219
  Serious: No
  Sender: FDA-Public Use
  Company Number: None

PATIENT
  Age: 17 Year
  Sex: Female

DRUGS (1)
  1. PPD SKIN TEST -TUBERCULIN- [Suspect]
     Dosage: 5 UNITS
     Dates: start: 20100709, end: 20100709

REACTIONS (1)
  - SYNCOPE [None]
